FAERS Safety Report 4525573-X (Version None)
Quarter: 2004Q4

REPORT INFORMATION
  Report Type: 
  Country: None (occurrence: None)
  Receive Date: 20041116
  Receipt Date: 20040827
  Transmission Date: 20050328
  Serious: No
  Sender: FDA-Public Use
  Company Number: S04-USA-05848-01

PATIENT
  Age: 77 Year
  Sex: Female

DRUGS (6)
  1. NAMENDA [Suspect]
     Indication: DEMENTIA ALZHEIMER'S TYPE
     Dates: start: 20040701
  2. REMINYL [Concomitant]
  3. PAXIL [Concomitant]
  4. POTASSIUM [Concomitant]
  5. COUMADIN [Concomitant]
  6. WATER PILL [Concomitant]

REACTIONS (2)
  - CONFUSIONAL STATE [None]
  - PERSONALITY CHANGE [None]
